FAERS Safety Report 4313189-X (Version None)
Quarter: 2004Q1

REPORT INFORMATION
  Report Type: 
  Country: None (occurrence: None)
  Receive Date: 20040308
  Receipt Date: 20030602
  Transmission Date: 20041129
  Serious: Yes (Hospitalization)
  Sender: FDA-Public Use
  Company Number: PHNU2003DE02164

PATIENT
  Age: 85 Year
  Sex: Male

DRUGS (1)
  1. PROVAS [Suspect]
     Route: 048
     Dates: start: 20030415

REACTIONS (2)
  - CORNEAL ULCER [None]
  - KERATITIS [None]
